FAERS Safety Report 7421227-0 (Version None)
Quarter: 2011Q2

REPORT INFORMATION
  Report Type: 
  Country: None (occurrence: None)
  Receive Date: 20110407
  Receipt Date: 20110323
  Transmission Date: 20111010
  Serious: Yes (Hospitalization)
  Sender: FDA-Public Use
  Company Number: GER/USA/11/0017846

PATIENT
  Age: 10 Year
  Sex: Female

DRUGS (3)
  1. CLONAZEPAM [Concomitant]
  2. LAMOTRIGINE [Suspect]
     Indication: GRAND MAL CONVULSION
     Dosage: 22 MG/KG, 1 IN 1 D
  3. DIAZEPAM [Concomitant]

REACTIONS (7)
  - TOXICITY TO VARIOUS AGENTS [None]
  - NO THERAPEUTIC RESPONSE [None]
  - BRAIN INJURY [None]
  - OCULOGYRIC CRISIS [None]
  - OVERDOSE [None]
  - CEREBRAL ATROPHY [None]
  - CEREBELLAR ATROPHY [None]
